FAERS Safety Report 12009670 (Version 2)
Quarter: 2016Q2

REPORT INFORMATION
  Report Type: Spontaneous
  Country: US (occurrence: US)
  Receive Date: 20160205
  Receipt Date: 20160524
  Transmission Date: 20160815
  Serious: No
  Sender: FDA-Public Use
  Company Number: US-PFIZER INC-2016067733

PATIENT
  Age: 85 Year
  Sex: Male
  Weight: 96 kg

DRUGS (4)
  1. ONE A DAY FOR MEN [Concomitant]
     Indication: VITAMIN SUPPLEMENTATION
     Dosage: UNK, DAILY
     Route: 048
  2. CRESTOR [Concomitant]
     Active Substance: ROSUVASTATIN CALCIUM
     Dosage: 10 MG, 1X/DAY AT BEDTIME
     Route: 048
     Dates: start: 2010
  3. TIKOSYN [Suspect]
     Active Substance: DOFETILIDE
     Indication: ARRHYTHMIA
  4. TIKOSYN [Suspect]
     Active Substance: DOFETILIDE
     Indication: CARDIAC FIBRILLATION
     Dosage: 500 UG, 2X/DAY (TWO PILLS PER DAY 11 AM; 11 PM 2 PILLS EACH DAY)
     Route: 048

REACTIONS (4)
  - Gout [Not Recovered/Not Resolved]
  - Hyperhidrosis [Not Recovered/Not Resolved]
  - Pruritus [Not Recovered/Not Resolved]
  - Tinea cruris [Unknown]

NARRATIVE: CASE EVENT DATE: 2015
